FAERS Safety Report 5579952-2 (Version None)
Quarter: 2008Q1

REPORT INFORMATION
  Report Type: 
  Country: None (occurrence: None)
  Receive Date: 20080103
  Receipt Date: 20071227
  Transmission Date: 20080703
  Serious: Yes (Other)
  Sender: FDA-Public Use
  Company Number: PHHY2007BR01097

PATIENT
  Age: 50 Year
  Sex: Female

DRUGS (1)
  1. DIOVAN AMLO FIX [Suspect]
     Dosage: 160/10MG
     Route: 048

REACTIONS (8)
  - ANOREXIA [None]
  - ERYTHEMA [None]
  - FORMICATION [None]
  - HAEMORRHAGE [None]
  - INSOMNIA [None]
  - JOINT SWELLING [None]
  - OEDEMA PERIPHERAL [None]
  - TACHYCARDIA [None]
